FAERS Safety Report 13872379 (Version 12)
Quarter: 2017Q4

REPORT INFORMATION
  Report Type: Spontaneous
  Country: GB (occurrence: GB)
  Receive Date: 20170816
  Receipt Date: 20171208
  Transmission Date: 20180320
  Serious: Yes (Death, Hospitalization, Other)
  Sender: FDA-Public Use
  Company Number: GB-PFIZER INC-2017352360

PATIENT
  Age: 7 Year
  Sex: Male
  Weight: 23 kg

DRUGS (4)
  1. ACTINOMYCIN D [Suspect]
     Active Substance: DACTINOMYCIN
     Indication: EPITHELIOID SARCOMA
     Dosage: UNK
     Dates: start: 20170728
  2. CYCLOPHOSPHAMIDE. [Suspect]
     Active Substance: CYCLOPHOSPHAMIDE
     Indication: EPITHELIOID SARCOMA
     Dosage: UNK
     Dates: start: 20170728
  3. XALKORI [Suspect]
     Active Substance: CRIZOTINIB
     Indication: EPITHELIOID SARCOMA METASTATIC
     Dosage: 250 MG, 1X/DAY
     Route: 048
     Dates: start: 20170811, end: 20170811
  4. VINCRISTINE SULFATE. [Suspect]
     Active Substance: VINCRISTINE SULFATE
     Indication: EPITHELIOID SARCOMA
     Dosage: UNK
     Dates: start: 20170728

REACTIONS (10)
  - Malaise [Fatal]
  - Sepsis [Unknown]
  - Multiple organ dysfunction syndrome [Fatal]
  - Acidosis [Fatal]
  - Systemic candida [Fatal]
  - Ascites [Unknown]
  - Pleural effusion [Fatal]
  - Hypoxia [Fatal]
  - Neoplasm progression [Fatal]
  - Product use in unapproved indication [Unknown]

NARRATIVE: CASE EVENT DATE: 2017
